FAERS Safety Report 7197050-1 (Version None)
Quarter: 2010Q4

REPORT INFORMATION
  Report Type: 
  Country: None (occurrence: None)
  Receive Date: 20101224
  Receipt Date: 20101221
  Transmission Date: 20110411
  Serious: Yes (Life-Threatening, Hospitalization, Other)
  Sender: FDA-Public Use
  Company Number: PHHO2010US15291

PATIENT
  Sex: Female
  Weight: 21.8 kg

DRUGS (5)
  1. AFINITOR [Suspect]
     Indication: ASTROCYTOMA, LOW GRADE
     Dosage: UNK
     Route: 048
     Dates: start: 20100415, end: 20101006
  2. VIGABATRIN [Concomitant]
     Indication: CONVULSION
  3. MELATONIN [Concomitant]
     Indication: INSOMNIA
  4. MULTI-VITAMINS [Concomitant]
  5. CEFADROXIL [Concomitant]
     Indication: OTITIS MEDIA

REACTIONS (4)
  - CONCOMITANT DISEASE PROGRESSION [None]
  - PYREXIA [None]
  - RESPIRATORY DISTRESS [None]
  - STATUS EPILEPTICUS [None]
